FAERS Safety Report 9018466 (Version 1)
Quarter: 2013Q1

REPORT INFORMATION
  Report Type: Spontaneous
  Country: US (occurrence: None)
  Receive Date: 20130111
  Receipt Date: 20130111
  Transmission Date: 20140127
  Serious: Yes (Other)
  Sender: FDA-Public Use
  Company Number: None

PATIENT
  Age: 70 Year
  Sex: Female
  Weight: 86.18 kg

DRUGS (1)
  1. LIVALO [Suspect]
     Indication: BLOOD CHOLESTEROL INCREASED
     Dosage: 1 T DAILY
     Dates: start: 20121115, end: 20121123

REACTIONS (9)
  - Loss of consciousness [None]
  - Asthenia [None]
  - Pain [None]
  - Muscle spasms [None]
  - Abdominal distension [None]
  - Consciousness fluctuating [None]
  - Memory impairment [None]
  - Visual impairment [None]
  - Musculoskeletal disorder [None]
